FAERS Safety Report 5578181-6 (Version None)
Quarter: 2007Q4

REPORT INFORMATION
  Report Type: 
  Country: None (occurrence: None)
  Receive Date: 20071231
  Receipt Date: 20071219
  Transmission Date: 20080405
  Serious: Yes (Other)
  Sender: FDA-Public Use
  Company Number: BR-PFIZER INC-2007107678

PATIENT
  Sex: Female
  Weight: 47 kg

DRUGS (1)
  1. CELEBRA [Suspect]
     Route: 048

REACTIONS (3)
  - AGITATION [None]
  - FORMICATION [None]
  - LABYRINTHITIS [None]
